FAERS Safety Report 23586300 (Version 5)
Quarter: 2024Q4

REPORT INFORMATION
  Report Type: Spontaneous
  Country: US (occurrence: US)
  Receive Date: 20240301
  Receipt Date: 20241114
  Transmission Date: 20250115
  Serious: Yes (Other)
  Sender: REGENERON
  Company Number: US-REGENERON PHARMACEUTICALS, INC.-2024-037512

PATIENT
  Sex: Female

DRUGS (2)
  1. EYLEA HD [Suspect]
     Active Substance: AFLIBERCEPT
     Indication: Neovascular age-related macular degeneration
     Dosage: 8 MG INTO LEFT EYE; FORMULATION: HD VIAL
     Dates: start: 20240215
  2. METHIMAZOLE [Concomitant]
     Active Substance: METHIMAZOLE
     Indication: Graves^ disease

REACTIONS (23)
  - Blindness transient [Recovered/Resolved]
  - Retinal occlusive vasculitis [Unknown]
  - Retinal haemorrhage [Recovering/Resolving]
  - Neovascular age-related macular degeneration [Recovered/Resolved]
  - Retinal exudates [Unknown]
  - Condition aggravated [Recovered/Resolved]
  - Uveitis [Unknown]
  - Anterior chamber fibrin [Recovered/Resolved]
  - Cataract [Unknown]
  - Retinal laser coagulation [Unknown]
  - Visual field defect [Unknown]
  - Vitreous haze [Recovering/Resolving]
  - Hypercoagulation [Unknown]
  - Condition aggravated [Not Recovered/Not Resolved]
  - Retinal perivascular sheathing [Not Recovered/Not Resolved]
  - Nuchal rigidity [Unknown]
  - Corneal oedema [Recovered/Resolved]
  - Eye pain [Recovered/Resolved]
  - Lacrimation increased [Recovering/Resolving]
  - Ocular hyperaemia [Recovering/Resolving]
  - Vision blurred [Recovering/Resolving]
  - Intraocular pressure increased [Recovered/Resolved]
  - Inadequate aseptic technique in use of product [Unknown]

NARRATIVE: CASE EVENT DATE: 20240101
